FAERS Safety Report 20861261 (Version 1)
Quarter: 2022Q2

REPORT INFORMATION
  Report Type: Spontaneous
  Country: US (occurrence: None)
  Receive Date: 20220520
  Receipt Date: 20220520
  Transmission Date: 20220721
  Serious: Yes (Disabling)
  Sender: FDA-Public Use
  Company Number: None

PATIENT
  Age: 70 Year
  Sex: Male
  Weight: 121.5 kg

DRUGS (19)
  1. FARXIGA [Suspect]
     Active Substance: DAPAGLIFLOZIN PROPANEDIOL
     Indication: Renal disorder
     Dosage: OTHER QUANTITY : 1 TABLET(S);?FREQUENCY : DAILY;?
     Route: 048
  2. DEVICE [Concomitant]
     Active Substance: DEVICE
  3. GLIPIZIDE [Concomitant]
     Active Substance: GLIPIZIDE
  4. Tradjenta 5 mg [Concomitant]
  5. PIOGLITAZONE HYDROCHLORIDE [Concomitant]
     Active Substance: PIOGLITAZONE HYDROCHLORIDE
  6. Calcitriol 0.25 mcg every other day [Concomitant]
  7. BUMETANIDE [Concomitant]
     Active Substance: BUMETANIDE
  8. SPIRONOLACTONE [Concomitant]
     Active Substance: SPIRONOLACTONE
  9. isosorbide 60 mg [Concomitant]
  10. LISINOPRIL [Concomitant]
     Active Substance: LISINOPRIL
  11. NEBIVOLOL [Concomitant]
     Active Substance: NEBIVOLOL
  12. EZETIMIBE [Concomitant]
     Active Substance: EZETIMIBE
  13. NICOTINE [Concomitant]
     Active Substance: NICOTINE
  14. low dose ASA [Concomitant]
  15. zinc 50 mg [Concomitant]
  16. vitamin C 1000 mg [Concomitant]
  17. Vit D3 4000 IU [Concomitant]
  18. Vitamin B12 1000 mcg [Concomitant]
  19. Fish oil 1200 mg [Concomitant]

REACTIONS (2)
  - Urinary tract infection [None]
  - Urinary incontinence [None]

NARRATIVE: CASE EVENT DATE: 20220426
